FAERS Safety Report 20026569 (Version 1)
Quarter: 2021Q4

REPORT INFORMATION
  Report Type: Report from Study
  Country: US (occurrence: US)
  Receive Date: 20211102
  Receipt Date: 20211102
  Transmission Date: 20220303
  Serious: Yes (Other)
  Sender: FDA-Public Use
  Company Number: US-PFIZER INC-202101458603

PATIENT
  Age: 54 Year
  Sex: Female

DRUGS (5)
  1. BRAFTOVI [Suspect]
     Active Substance: ENCORAFENIB
     Dosage: 450 MG, DAILY
     Route: 048
  2. BRAFTOVI [Suspect]
     Active Substance: ENCORAFENIB
     Dosage: UNK
     Route: 048
     Dates: start: 20211024
  3. MEKTOVI [Suspect]
     Active Substance: BINIMETINIB
     Dosage: 45 MG, 2X/DAY(EVERY 12 HOURS )
     Route: 048
  4. MEKTOVI [Suspect]
     Active Substance: BINIMETINIB
     Dosage: UNK
     Dates: start: 20211024
  5. ALEVE [Concomitant]
     Active Substance: NAPROXEN SODIUM
     Dosage: UNK

REACTIONS (9)
  - Diabetic ketoacidosis [Unknown]
  - Blood glucose abnormal [Unknown]
  - COVID-19 [Unknown]
  - Dehydration [Unknown]
  - Chromaturia [Unknown]
  - Somnolence [Unknown]
  - Asthenia [Unknown]
  - Blood test abnormal [Unknown]
  - Skin disorder [Recovered/Resolved]
